FAERS Safety Report 18857817 (Version 3)
Quarter: 2021Q1

REPORT INFORMATION
  Report Type: Spontaneous
  Country: US (occurrence: US)
  Receive Date: 20210208
  Receipt Date: 20210308
  Transmission Date: 20210420
  Serious: No
  Sender: FDA-Public Use
  Company Number: US-BRISTOL-MYERS SQUIBB COMPANY-BMS-2021-005421

PATIENT
  Age: 87 Year
  Sex: Male
  Weight: 102.06 kg

DRUGS (14)
  1. VITAMIN B12 [VITAMIN B12 NOS] [Suspect]
     Active Substance: CYANOCOBALAMIN
     Indication: VITAMIN SUPPLEMENTATION
     Dosage: 2500 MILLIGRAM, QD
     Route: 065
     Dates: start: 2020
  2. VITAMIN D [VITAMIN D NOS] [Suspect]
     Active Substance: VITAMIN D NOS
     Dosage: 3000 IU DAILY
     Route: 065
     Dates: start: 2019
  3. ASPIRIN KENT [ACETYLSALICYLIC ACID] [Suspect]
     Active Substance: ASPIRIN
     Indication: THROMBOSIS PROPHYLAXIS
     Dosage: 81 MG LOW DOSE,  ONCE DAILY
     Route: 065
  4. ZOCOR [Suspect]
     Active Substance: SIMVASTATIN
     Indication: BLOOD CHOLESTEROL ABNORMAL
     Dosage: 20 MILLIGRAM, QD
     Route: 048
  5. CELEXA [CELECOXIB] [Suspect]
     Active Substance: CELECOXIB
     Indication: MAJOR DEPRESSION
     Dosage: 1?20MG TABLET ONCE DAILY
     Route: 065
  6. FAMOTIDINE. [Suspect]
     Active Substance: FAMOTIDINE
     Indication: PROPHYLAXIS OF NAUSEA AND VOMITING
     Dosage: 1?40MG TABLET TWICE DAILY
     Route: 065
     Dates: start: 2020
  7. VITAMIN C [Suspect]
     Active Substance: ASCORBIC ACID
     Indication: VITAMIN SUPPLEMENTATION
     Dosage: 1 TAB, DAILY
     Route: 065
     Dates: start: 2020
  8. GLIMEPIRIDE. [Suspect]
     Active Substance: GLIMEPIRIDE
     Indication: DIABETES MELLITUS
     Dosage: 2 MILLIGRAM, QD
     Route: 065
     Dates: start: 2020
  9. VITAMINS, OTHER COMBINATIONS [Suspect]
     Active Substance: VITAMINS
     Indication: PRODUCT USED FOR UNKNOWN INDICATION
     Dosage: 1 CAPSULE TAKEN DAILY
     Route: 065
  10. COVID?19 VACCINE NOS. [Suspect]
     Active Substance: COVID-19 VACCINE NOS
     Indication: COVID-19 IMMUNISATION
     Dosage: UNK
     Route: 065
     Dates: start: 20210115
  11. MAGNESIUM [Suspect]
     Active Substance: MAGNESIUM
     Indication: ADVERSE EVENT
     Dosage: 400MG MOSTLY EVERY DAY BUT NOT STRICTLY EVERY DAY
     Route: 065
     Dates: start: 2020
  12. ELIQUIS [Suspect]
     Active Substance: APIXABAN
     Indication: THROMBOSIS PROPHYLAXIS
     Dosage: 2.5 MILLIGRAM, BID
     Route: 065
     Dates: start: 2018
  13. VITAMIN D [VITAMIN D NOS] [Suspect]
     Active Substance: VITAMIN D NOS
     Indication: VITAMIN SUPPLEMENTATION
     Dosage: 2000 LUS IN THE MORNING AND 1000 LUS NIGHTLY
     Route: 065
     Dates: start: 2019
  14. METOPROLOL. [Suspect]
     Active Substance: METOPROLOL
     Indication: PRODUCT USED FOR UNKNOWN INDICATION
     Dosage: 1/2 TABLET ONCE DAILY
     Route: 065

REACTIONS (8)
  - Hypoacusis [Unknown]
  - Nausea [Unknown]
  - Fatigue [Unknown]
  - Asthenia [Unknown]
  - Weight fluctuation [Unknown]
  - Feeling abnormal [Not Recovered/Not Resolved]
  - Parosmia [Not Recovered/Not Resolved]
  - Headache [Unknown]

NARRATIVE: CASE EVENT DATE: 202101
